FAERS Safety Report 21662464 (Version 2)
Quarter: 2023Q2

REPORT INFORMATION
  Report Type: Report from Study
  Country: US (occurrence: US)
  Receive Date: 20221130
  Receipt Date: 20230406
  Transmission Date: 20230722
  Serious: No
  Sender: FDA-Public Use
  Company Number: US-ABBVIE-4182571

PATIENT
  Age: 69 Year
  Sex: Male
  Weight: 92 kg

DRUGS (7)
  1. SKYRIZI [Suspect]
     Active Substance: RISANKIZUMAB-RZAA
     Indication: Psoriasis
     Dosage: AT WEEK 0, WEEK 4 THEN EVERY 12 WEEKS?FORM STRENGTH: 150 MILLIGRAM
     Route: 058
     Dates: start: 20220602
  2. SKYRIZI [Suspect]
     Active Substance: RISANKIZUMAB-RZAA
     Indication: Psoriasis
     Dosage: LAST ADMIN DATE : 2022
     Route: 058
     Dates: start: 202204
  3. SYNTHROID [Concomitant]
     Active Substance: LEVOTHYROXINE SODIUM
     Indication: Product used for unknown indication
     Dosage: SYNTHROID 150 MCG TABLET, 150 MG PILL, FREQUENCY TEXT: DAILY
     Route: 065
     Dates: start: 1980
  4. FLOMAX [Concomitant]
     Active Substance: TAMSULOSIN HYDROCHLORIDE
     Indication: Product used for unknown indication
  5. MEN^S DAILY ONE [Concomitant]
     Indication: Product used for unknown indication
  6. TAMSULOSIN [Concomitant]
     Active Substance: TAMSULOSIN
     Indication: Product used for unknown indication
     Dosage: PILL
     Dates: start: 2017
  7. PFIZER-BIONTECH COVID-19 VACCINE [Concomitant]
     Active Substance: TOZINAMERAN
     Indication: COVID-19 immunisation
     Dosage: ONE IN ONCE
     Route: 030

REACTIONS (2)
  - Pruritus [Unknown]
  - Drug eruption [Unknown]

NARRATIVE: CASE EVENT DATE: 20220401
